FAERS Safety Report 20480058 (Version 1)
Quarter: 2022Q1

REPORT INFORMATION
  Report Type: Spontaneous
  Country: US (occurrence: None)
  Receive Date: 20220215
  Receipt Date: 20220215
  Transmission Date: 20220423
  Serious: Yes (Hospitalization)
  Sender: FDA-Public Use
  Company Number: None

PATIENT
  Age: 26 Year
  Sex: Male
  Weight: 121.5 kg

DRUGS (1)
  1. DESVENLAFAXINE [Suspect]
     Active Substance: DESVENLAFAXINE
     Indication: Depression
     Dosage: OTHER QUANTITY : 30 TABLET(S);?FREQUENCY : DAILY;?
     Route: 048
     Dates: start: 20220210, end: 20220211

REACTIONS (6)
  - Hypertension [None]
  - Heart rate increased [None]
  - Confusional state [None]
  - Disorientation [None]
  - Mydriasis [None]
  - Dry mouth [None]

NARRATIVE: CASE EVENT DATE: 20220211
